APPROVED DRUG PRODUCT: ISOLYTE E IN DEXTROSE 5% IN PLASTIC CONTAINER
Active Ingredient: CALCIUM CHLORIDE; DEXTROSE; MAGNESIUM CHLORIDE; POTASSIUM CHLORIDE; SODIUM ACETATE; SODIUM CHLORIDE; SODIUM CITRATE
Strength: 35MG/100ML;5GM/100ML;30MG/100ML;74MG/100ML;640MG/100ML;500MG/100ML;74MG/100ML
Dosage Form/Route: INJECTABLE;INJECTION
Application: N019867 | Product #001
Applicant: B BRAUN MEDICAL INC
Approved: Dec 20, 1993 | RLD: No | RS: No | Type: DISCN